FAERS Safety Report 21843573 (Version 1)
Quarter: 2023Q1

REPORT INFORMATION
  Report Type: Spontaneous
  Country: PH (occurrence: None)
  Receive Date: 20230109
  Receipt Date: 20230109
  Transmission Date: 20230417
  Serious: Yes (Life-Threatening, Hospitalization)
  Sender: FDA-Public Use
  Company Number: None

PATIENT
  Age: 24 Year
  Sex: Female

DRUGS (1)
  1. LAMICTAL [Suspect]
     Active Substance: LAMOTRIGINE
     Indication: Bipolar disorder
     Dates: start: 20221216, end: 20230103

REACTIONS (12)
  - Rash [None]
  - Pyrexia [None]
  - Measles [None]
  - Chapped lips [None]
  - Lip haemorrhage [None]
  - Malaise [None]
  - Stevens-Johnson syndrome [None]
  - Skin exfoliation [None]
  - Mouth haemorrhage [None]
  - Product communication issue [None]
  - Brief resolved unexplained event [None]
  - Product prescribing error [None]

NARRATIVE: CASE EVENT DATE: 20221226
